FAERS Safety Report 23178948 (Version 12)
Quarter: 2024Q1

REPORT INFORMATION
  Report Type: Spontaneous
  Country: CA (occurrence: CA)
  Receive Date: 20231113
  Receipt Date: 20240315
  Transmission Date: 20240409
  Serious: Yes (Other)
  Sender: FDA-Public Use
  Company Number: CA-PFIZER INC-PV202300141108

PATIENT
  Age: 61 Year
  Sex: Male
  Weight: 84 kg

DRUGS (25)
  1. ZIRABEV [Suspect]
     Active Substance: BEVACIZUMAB-BVZR
     Dosage: 420 MG
     Route: 042
     Dates: start: 20230815
  2. ZIRABEV [Suspect]
     Active Substance: BEVACIZUMAB-BVZR
     Dosage: 420 MG
     Route: 042
     Dates: start: 20230815
  3. ZIRABEV [Suspect]
     Active Substance: BEVACIZUMAB-BVZR
     Dosage: 420 MG
     Route: 042
     Dates: start: 20230830
  4. ZIRABEV [Suspect]
     Active Substance: BEVACIZUMAB-BVZR
     Dosage: 420 MG
     Route: 042
     Dates: start: 20230830
  5. ZIRABEV [Suspect]
     Active Substance: BEVACIZUMAB-BVZR
     Dosage: 420 MG
     Route: 042
     Dates: start: 20230913
  6. ZIRABEV [Suspect]
     Active Substance: BEVACIZUMAB-BVZR
     Dosage: 420 MG
     Route: 042
     Dates: start: 20230913
  7. ZIRABEV [Suspect]
     Active Substance: BEVACIZUMAB-BVZR
     Dosage: 420 MG
     Route: 042
     Dates: start: 20230927
  8. ZIRABEV [Suspect]
     Active Substance: BEVACIZUMAB-BVZR
     Dosage: 420 MG, DAY 1 AND 15 (EVERY 28 DAYS)
     Route: 042
     Dates: start: 20231011
  9. ZIRABEV [Suspect]
     Active Substance: BEVACIZUMAB-BVZR
     Dosage: 420 MG, DAY 1 AND 15 (EVERY 28 DAYS)
     Route: 042
     Dates: start: 20231011
  10. ZIRABEV [Suspect]
     Active Substance: BEVACIZUMAB-BVZR
     Dosage: 420 MG
     Route: 042
     Dates: start: 20231025
  11. ZIRABEV [Suspect]
     Active Substance: BEVACIZUMAB-BVZR
     Dosage: 420 MG
     Route: 042
     Dates: start: 20231025
  12. ZIRABEV [Suspect]
     Active Substance: BEVACIZUMAB-BVZR
     Dosage: 420 MG
     Route: 042
     Dates: start: 20231122
  13. ZIRABEV [Suspect]
     Active Substance: BEVACIZUMAB-BVZR
     Dosage: 420 MG
     Route: 042
     Dates: start: 20231206
  14. ZIRABEV [Suspect]
     Active Substance: BEVACIZUMAB-BVZR
     Dosage: 420 MG
     Route: 042
     Dates: start: 20231206
  15. ZIRABEV [Suspect]
     Active Substance: BEVACIZUMAB-BVZR
     Dosage: 420 MG
     Route: 042
     Dates: start: 20231220
  16. ZIRABEV [Suspect]
     Active Substance: BEVACIZUMAB-BVZR
     Dosage: 420 MG
     Route: 042
     Dates: start: 20231220
  17. ZIRABEV [Suspect]
     Active Substance: BEVACIZUMAB-BVZR
     Dosage: 420 MG
     Route: 042
     Dates: start: 20240117
  18. ZIRABEV [Suspect]
     Active Substance: BEVACIZUMAB-BVZR
     Dosage: 420 MG
     Route: 042
     Dates: start: 20240117
  19. ZIRABEV [Suspect]
     Active Substance: BEVACIZUMAB-BVZR
     Dosage: 420 MG
     Route: 042
     Dates: start: 20240131
  20. ZIRABEV [Suspect]
     Active Substance: BEVACIZUMAB-BVZR
     Dosage: 420 MG
     Route: 042
     Dates: start: 20240131
  21. ZIRABEV [Suspect]
     Active Substance: BEVACIZUMAB-BVZR
     Dosage: 425 MG, Q 2 WEEKS REPEATS 24
     Route: 042
  22. ZIRABEV [Suspect]
     Active Substance: BEVACIZUMAB-BVZR
     Dosage: 425 MG
     Route: 042
     Dates: start: 20240214
  23. ZIRABEV [Suspect]
     Active Substance: BEVACIZUMAB-BVZR
     Dosage: 425 MG
     Route: 042
     Dates: start: 20240214
  24. ZIRABEV [Suspect]
     Active Substance: BEVACIZUMAB-BVZR
     Dosage: 425 MG
     Route: 042
     Dates: start: 20240228
  25. HEPARIN [Concomitant]
     Active Substance: HEPARIN SODIUM
     Dosage: UNK ,100UNIT/ML (3-5 ML)

REACTIONS (2)
  - Hypertension [Not Recovered/Not Resolved]
  - Tooth extraction [Unknown]

NARRATIVE: CASE EVENT DATE: 20230815
